FAERS Safety Report 5055145-2 (Version None)
Quarter: 2006Q3

REPORT INFORMATION
  Report Type: 
  Country: None (occurrence: None)
  Receive Date: 20060717
  Receipt Date: 20060707
  Transmission Date: 20061208
  Serious: Yes (Death, Life-Threatening, Hospitalization)
  Sender: FDA-Public Use
  Company Number: 2006-07-0267

PATIENT
  Age: 51 Year
  Sex: Male
  Weight: 107 kg

DRUGS (9)
  1. PEG-INTRON [Suspect]
     Indication: HEPATITIS C
     Dosage: 80-120 UG/WK SUBCUTANEOUS
     Route: 058
     Dates: start: 20060405, end: 20060621
  2. REBETOL [Suspect]
     Indication: HEPATITIS C
     Dosage: 0.8-1.2 G QD ORAL
     Route: 048
     Dates: start: 20060405, end: 20060702
  3. PROCRIT [Suspect]
     Indication: ANAEMIA
     Dosage: 40,000 U 2X/W SUBCUTANEOUS
     Route: 058
     Dates: start: 20060418, end: 20060627
  4. NEUPOGEN [Concomitant]
  5. LEXAPRO [Concomitant]
  6. DYRENIUM [Concomitant]
  7. MULTIVITAMIN [Concomitant]
  8. QUININE SULFATE [Concomitant]
  9. LASIX [Concomitant]

REACTIONS (4)
  - ASTHENIA [None]
  - FALL [None]
  - FATIGUE [None]
  - PLATELET COUNT DECREASED [None]
